FAERS Safety Report 26197175 (Version 1)
Quarter: 2025Q4

REPORT INFORMATION
  Report Type: Report from Study
  Country: US (occurrence: US)
  Receive Date: 20251224
  Receipt Date: 20251224
  Transmission Date: 20260118
  Serious: Yes (Hospitalization, Other)
  Sender: PARATEK PHARMACEUTICALS
  Company Number: US-PARATEK PHARMACEUTICALS, INC.-2025PTK00361

PATIENT
  Age: 77 Year
  Sex: Female
  Weight: 39.909 kg

DRUGS (20)
  1. NUZYRA [Suspect]
     Active Substance: OMADACYCLINE
     Indication: Mycobacterium abscessus infection
     Dosage: UNK [SAMPLES]
     Dates: start: 202409
  2. NUZYRA [Suspect]
     Active Substance: OMADACYCLINE
     Indication: Pneumonia bacterial
     Dosage: 300 MG, 1X/DAY
     Route: 048
     Dates: start: 20250122, end: 2025
  3. NUZYRA [Suspect]
     Active Substance: OMADACYCLINE
     Dosage: 300 MG, 1X/DAY
     Route: 048
     Dates: start: 2025, end: 2025
  4. NUZYRA [Suspect]
     Active Substance: OMADACYCLINE
     Dosage: 300 MG, 1X/DAY
     Route: 048
     Dates: start: 2025, end: 2025
  5. LINEZOLID [Suspect]
     Active Substance: LINEZOLID
  6. ARIKAYCE [Suspect]
     Active Substance: AMIKACIN
     Dosage: UNK
     Dates: end: 2025
  7. LACTOBACILLUS ACIDOPHILUS [Concomitant]
     Active Substance: LACTOBACILLUS ACIDOPHILUS
  8. BUMETANIDE [Concomitant]
     Active Substance: BUMETANIDE
  9. CALCIUM + VITAMIN D3 [CALCIUM;COLECALCIFEROL] [Concomitant]
  10. COENZYME Q10 [Concomitant]
     Active Substance: DIETARY SUPPLEMENT\UBIDECARENONE
  11. FLUTICASONE [Concomitant]
     Active Substance: FLUTICASONE
     Dosage: NASAL SUSPENSION 50 MCG/ACT
     Route: 045
  12. CHONDROITIN SULFATE (BOVINE)\GLUCOSAMINE HYDROCHLORIDE [Concomitant]
     Active Substance: CHONDROITIN SULFATE (BOVINE)\GLUCOSAMINE HYDROCHLORIDE
     Dosage: UNK
  13. LUTEIN [Concomitant]
     Active Substance: LUTEIN
  14. MAGNESIUM CARBONATE [Concomitant]
     Active Substance: MAGNESIUM CARBONATE
  15. VITAMINS [Concomitant]
     Active Substance: VITAMINS
     Dosage: WITH ADEK, FOLATE, IRON
  16. PRAVASTATIN [Concomitant]
     Active Substance: PRAVASTATIN
  17. ROPINIROLE [Concomitant]
     Active Substance: ROPINIROLE
  18. CALCIUM [Concomitant]
     Active Substance: CALCIUM
  19. VITAMIN D3 [Concomitant]
     Active Substance: CHOLECALCIFEROL
  20. VITAMINS [Concomitant]
     Active Substance: VITAMINS

REACTIONS (11)
  - Neuropathy peripheral [Unknown]
  - Heart rate increased [Unknown]
  - Anaemia [Unknown]
  - Weight decreased [Not Recovered/Not Resolved]
  - Dyspnoea [Unknown]
  - Performance status decreased [Unknown]
  - Headache [Recovering/Resolving]
  - Fatigue [Not Recovered/Not Resolved]
  - Unevaluable event [Unknown]
  - Incorrect product administration duration [Recovered/Resolved]
  - Product storage error [Recovered/Resolved]

NARRATIVE: CASE EVENT DATE: 20250101
